FAERS Safety Report 13436740 (Version 1)
Quarter: 2017Q2

REPORT INFORMATION
  Report Type: Spontaneous
  Country: US (occurrence: US)
  Receive Date: 20170412
  Receipt Date: 20170412
  Transmission Date: 20170830
  Serious: No
  Sender: FDA-Public Use
  Company Number: US-SA-2016SA167412

PATIENT
  Age: 67 Year
  Sex: Female

DRUGS (1)
  1. ALLEGRA [Suspect]
     Active Substance: FEXOFENADINE HYDROCHLORIDE
     Indication: MULTIPLE ALLERGIES
     Route: 065

REACTIONS (6)
  - Nasal dryness [Unknown]
  - Dizziness [Unknown]
  - Throat irritation [Unknown]
  - Product taste abnormal [Unknown]
  - Dry mouth [Unknown]
  - Nasal pruritus [Unknown]
